FAERS Safety Report 9292021 (Version 1)
Quarter: 2013Q2

REPORT INFORMATION
  Report Type: Spontaneous
  Country: US (occurrence: US)
  Receive Date: 20130516
  Receipt Date: 20130516
  Transmission Date: 20140414
  Serious: No
  Sender: FDA-Public Use
  Company Number: US-PFIZER INC-2013150247

PATIENT
  Age: 35 Year
  Sex: Male
  Weight: 86.17 kg

DRUGS (8)
  1. LYRICA [Suspect]
     Indication: FIBROMYALGIA
     Dosage: 75 MG, UNK
     Dates: start: 2009
  2. XANAX [Concomitant]
     Dosage: UNK
  3. ELAVIL [Concomitant]
     Dosage: UNK
  4. VICODIN [Concomitant]
     Dosage: 7.5MG/750 MG
  5. SKELAXIN [Concomitant]
     Dosage: UNK
  6. TRAMADOL [Concomitant]
     Indication: BACK PAIN
     Dosage: UNK
  7. TRAMADOL [Concomitant]
     Indication: MUSCULOSKELETAL PAIN
  8. MOBIC [Concomitant]
     Dosage: UNK
     Dates: start: 2009

REACTIONS (1)
  - Vitamin B12 decreased [Recovered/Resolved]
